FAERS Safety Report 4923595-8 (Version None)
Quarter: 2006Q1

REPORT INFORMATION
  Report Type: 
  Country: None (occurrence: None)
  Receive Date: 20060227
  Receipt Date: 20060210
  Transmission Date: 20060701
  Serious: Yes (Death, Hospitalization)
  Sender: FDA-Public Use
  Company Number: NL-SANOFI-SYNTHELABO-F01200600385

PATIENT
  Sex: Female

DRUGS (11)
  1. OXALIPLATIN [Suspect]
     Indication: COLORECTAL CANCER
     Route: 041
     Dates: start: 20060202, end: 20060202
  2. CAPECITABINE [Suspect]
     Dosage: 1800 MG BID DAYS 1-14 (1250 MG/M2 AFTER CYCLE 6)
     Route: 048
     Dates: start: 20060202
  3. BEVACIZUMAB [Suspect]
     Route: 041
     Dates: start: 20060202, end: 20060202
  4. CETUXIMAB [Suspect]
     Dosage: 400 MG/M2 (760 MG) DAY 1 OF CYCLE 1, THEREAFTER 250 MG/M2 WEEKLY
     Route: 041
     Dates: start: 20060209, end: 20060209
  5. DICLOFENAC [Concomitant]
     Route: 065
  6. PANTOZOL [Concomitant]
     Dosage: 40 MG
  7. DURAGESIC-100 [Concomitant]
     Dosage: 25 UNK
  8. METOCLOPRAMIDE [Concomitant]
     Dosage: UNK
  9. ZOFRAN [Concomitant]
  10. DUSPATALIN [Concomitant]
  11. METOCLOPRAMIDE [Concomitant]
     Dosage: UNK

REACTIONS (5)
  - DIARRHOEA [None]
  - NAUSEA [None]
  - PERITONITIS [None]
  - TUMOUR PERFORATION [None]
  - VOMITING [None]
